FAERS Safety Report 6036410-9 (Version None)
Quarter: 2009Q1

REPORT INFORMATION
  Report Type: 
  Country: None (occurrence: None)
  Receive Date: 20090112
  Receipt Date: 20090107
  Transmission Date: 20090719
  Serious: Yes (Hospitalization)
  Sender: FDA-Public Use
  Company Number: 2008AL0010410

PATIENT
  Age: 46 Year
  Sex: Male
  Weight: 83.9154 kg

DRUGS (8)
  1. DIGOXIN [Suspect]
     Indication: CARDIAC DISORDER
     Dosage: 0.25MG, HALF TAB, QD, PO
     Route: 048
     Dates: start: 20030101, end: 20080415
  2. ATENOLOL [Concomitant]
  3. FUROSEMIDE [Concomitant]
  4. LIPITOR [Concomitant]
  5. LISINOPRIL [Concomitant]
  6. COUMADIN [Concomitant]
  7. MULTI-VITAMINS [Concomitant]
  8. POTASSIUM CHLORIDE [Concomitant]

REACTIONS (13)
  - ANOREXIA [None]
  - ASTHENIA [None]
  - BACK PAIN [None]
  - CARDIOACTIVE DRUG LEVEL DECREASED [None]
  - CHEST PAIN [None]
  - DIZZINESS [None]
  - EYE SWELLING [None]
  - FATIGUE [None]
  - LISTLESS [None]
  - NECK PAIN [None]
  - RASH [None]
  - SOMNOLENCE [None]
  - SUDDEN ONSET OF SLEEP [None]
